FAERS Safety Report 21722400 (Version 1)
Quarter: 2022Q4

REPORT INFORMATION
  Report Type: Report from Study
  Country: US (occurrence: US)
  Receive Date: 20221213
  Receipt Date: 20221213
  Transmission Date: 20230113
  Serious: Yes (Other)
  Sender: FDA-Public Use
  Company Number: US-ABBVIE-22K-163-4297335-00

PATIENT
  Sex: Female

DRUGS (4)
  1. HUMIRA [Suspect]
     Active Substance: ADALIMUMAB
     Indication: Hidradenitis
     Dosage: CITRATE FREE?FORM STRENGTH- 40 MG
     Route: 058
  2. HUMIRA [Suspect]
     Active Substance: ADALIMUMAB
     Dosage: CITRATE FREE?FORM STRENGTH- 40 MG
     Route: 058
  3. MODERNA COVID-19 VACCINE [Concomitant]
     Active Substance: ELASOMERAN
     Indication: COVID-19 immunisation
     Dosage: 1ST DOSE
     Route: 030
     Dates: start: 20211001, end: 20211001
  4. MODERNA COVID-19 VACCINE [Concomitant]
     Active Substance: ELASOMERAN
     Indication: COVID-19 immunisation
     Dosage: 2ND DOSE
     Route: 030
     Dates: start: 20211130, end: 20211130

REACTIONS (8)
  - Transient ischaemic attack [Recovered/Resolved]
  - Skin exfoliation [Unknown]
  - Furuncle [Not Recovered/Not Resolved]
  - Alopecia [Recovering/Resolving]
  - COVID-19 [Recovering/Resolving]
  - Illness [Recovered/Resolved]
  - Therapeutic response shortened [Unknown]
  - Dry skin [Recovered/Resolved]

NARRATIVE: CASE EVENT DATE: 20220101
